FAERS Safety Report 25929698 (Version 1)
Quarter: 2025Q4

REPORT INFORMATION
  Report Type: Spontaneous
  Country: US (occurrence: None)
  Receive Date: 20251015
  Receipt Date: 20251015
  Transmission Date: 20260118
  Serious: Yes (Hospitalization)
  Sender: FDA-CTU
  Company Number: None

PATIENT
  Age: 82 Year
  Sex: Female

DRUGS (1)
  1. POMALYST [Suspect]
     Active Substance: POMALIDOMIDE
     Indication: Plasma cell myeloma
     Dosage: 4MG QD ORAL ?
     Route: 048
     Dates: start: 20250422, end: 20250918

REACTIONS (2)
  - Peripheral swelling [None]
  - Haemoglobin decreased [None]

NARRATIVE: CASE EVENT DATE: 20250918
